FAERS Safety Report 9746870 (Version 1)
Quarter: 2013Q4

REPORT INFORMATION
  Report Type: Spontaneous
  Country: US (occurrence: US)
  Receive Date: 20131211
  Receipt Date: 20131211
  Transmission Date: 20140711
  Serious: Yes (Other)
  Sender: FDA-Public Use
  Company Number: US-TEVA-449481USA

PATIENT
  Age: 25 Year
  Sex: Female
  Weight: 68.55 kg

DRUGS (4)
  1. PARAGARD 380A [Suspect]
     Indication: CONTRACEPTION
     Route: 015
     Dates: start: 20131120, end: 20131129
  2. PRENATAL VITAMIN [Concomitant]
  3. FOLIC ACID [Concomitant]
  4. IRON [Concomitant]

REACTIONS (1)
  - Medical device complication [Recovered/Resolved]
